FAERS Safety Report 24748901 (Version 1)
Quarter: 2024Q4

REPORT INFORMATION
  Report Type: Spontaneous
  Country: US (occurrence: US)
  Receive Date: 20241218
  Receipt Date: 20241218
  Transmission Date: 20250115
  Serious: No
  Sender: MYLAN
  Company Number: US-MYLANLABS-2024M1110475

PATIENT

DRUGS (2)
  1. TYRVAYA [Suspect]
     Active Substance: VARENICLINE TARTRATE
     Indication: Dry eye
     Dosage: UNK
     Route: 045
  2. TYRVAYA [Suspect]
     Active Substance: VARENICLINE TARTRATE
     Indication: Dry mouth

REACTIONS (1)
  - Sneezing [Unknown]

NARRATIVE: CASE EVENT DATE: 20240101
